FAERS Safety Report 6810432-X (Version None)
Quarter: 2010Q2

REPORT INFORMATION
  Report Type: 
  Country: None (occurrence: None)
  Receive Date: 20100630
  Receipt Date: 20100622
  Transmission Date: 20101027
  Serious: Yes (Life-Threatening, Hospitalization, Other)
  Sender: FDA-Public Use
  Company Number: FR-ABBOTT-10P-056-0640218-00

PATIENT
  Sex: Male

DRUGS (3)
  1. HUMIRA [Suspect]
     Indication: ANKYLOSING SPONDYLITIS
     Dates: start: 20080301
  2. HUMIRA [Suspect]
     Indication: RHEUMATOID ARTHRITIS
  3. VENTOLIN [Concomitant]
     Indication: ASTHMA

REACTIONS (10)
  - ACUTE RESPIRATORY DISTRESS SYNDROME [None]
  - ANGIOPATHY [None]
  - EMPHYSEMA [None]
  - HAEMODYNAMIC INSTABILITY [None]
  - ISCHAEMIC HEPATITIS [None]
  - LUNG DISORDER [None]
  - PYELONEPHRITIS [None]
  - RENAL FAILURE ACUTE [None]
  - SEPSIS [None]
  - SEPTIC SHOCK [None]
